FAERS Safety Report 8230569-0 (Version None)
Quarter: 2012Q1

REPORT INFORMATION
  Report Type: 
  Country: None (occurrence: None)
  Receive Date: 20120316
  Receipt Date: 20120316
  Transmission Date: 20120608
  Serious: Yes (Hospitalization)
  Sender: FDA-Public Use
  Company Number: None

PATIENT
  Age: 48 Year
  Sex: Female
  Weight: 84.6 kg

DRUGS (4)
  1. ASPIRIN [Concomitant]
  2. PRAVASTATIN SODIUM [Suspect]
  3. AGALSIDASE ALFA (REPLAGAL) [Suspect]
     Indication: FABRY'S DISEASE
     Dosage: 18.1 MG IV - Q 2 WEEKS
     Route: 042
     Dates: start: 20101018, end: 20120221
  4. ZOLOFT [Concomitant]

REACTIONS (2)
  - TUNNEL VISION [None]
  - BLINDNESS TRANSIENT [None]
